FAERS Safety Report 20988047 (Version 2)
Quarter: 2022Q4

REPORT INFORMATION
  Report Type: Spontaneous
  Country: US (occurrence: US)
  Receive Date: 20220621
  Receipt Date: 20221103
  Transmission Date: 20230113
  Serious: Yes (Other)
  Sender: FDA-Public Use
  Company Number: US-JNJFOC-20220631803

PATIENT
  Age: 67 Year
  Sex: Female

DRUGS (9)
  1. ELMIRON [Suspect]
     Active Substance: PENTOSAN POLYSULFATE SODIUM
     Indication: Cystitis interstitial
     Dosage: PER DAY
     Route: 048
     Dates: start: 1997, end: 2007
  2. ELMIRON [Suspect]
     Active Substance: PENTOSAN POLYSULFATE SODIUM
     Dosage: PER DAY
     Route: 048
     Dates: start: 20080104, end: 20120629
  3. ELMIRON [Suspect]
     Active Substance: PENTOSAN POLYSULFATE SODIUM
     Dosage: PER DAY
     Route: 048
     Dates: start: 20120808, end: 20150501
  4. ELMIRON [Suspect]
     Active Substance: PENTOSAN POLYSULFATE SODIUM
     Dosage: PER DAY
     Route: 048
     Dates: start: 20150525, end: 20150630
  5. ELMIRON [Suspect]
     Active Substance: PENTOSAN POLYSULFATE SODIUM
     Dosage: PER DAY
     Route: 048
     Dates: start: 20150731, end: 20160926
  6. ELMIRON [Suspect]
     Active Substance: PENTOSAN POLYSULFATE SODIUM
     Dosage: PER DAY
     Route: 048
     Dates: start: 20161227, end: 20170923
  7. ELMIRON [Suspect]
     Active Substance: PENTOSAN POLYSULFATE SODIUM
     Dosage: PER DAY
     Route: 048
     Dates: start: 20180124, end: 20180918
  8. AMITRIPTYLINE [Concomitant]
     Active Substance: AMITRIPTYLINE
     Indication: Cystitis interstitial
     Dates: start: 20180124
  9. GABAPENTIN [Concomitant]
     Active Substance: GABAPENTIN
     Indication: Cystitis interstitial
     Dates: start: 20180124

REACTIONS (1)
  - Maculopathy [Unknown]

NARRATIVE: CASE EVENT DATE: 20170701
